FAERS Safety Report 10404268 (Version 1)
Quarter: 2014Q1

REPORT INFORMATION
  Report Type: Spontaneous
  Country: US (occurrence: None)
  Receive Date: 20140131
  Receipt Date: 20140131
  Transmission Date: 20141002
  Serious: Yes (Hospitalization)
  Sender: FDA-Public Use
  Company Number: 071539

PATIENT
  Sex: Female
  Weight: 32.7 kg

DRUGS (3)
  1. KEPPRA [Suspect]
     Indication: CONVULSION
  2. SUMATRIPTAN [Concomitant]
  3. NAPROXEN [Concomitant]

REACTIONS (1)
  - Partial seizures [None]
